FAERS Safety Report 9752702 (Version 1)
Quarter: 2013Q4

REPORT INFORMATION
  Report Type: Spontaneous
  Country: JP (occurrence: JP)
  Receive Date: 20131213
  Receipt Date: 20131213
  Transmission Date: 20140711
  Serious: Yes (Hospitalization)
  Sender: FDA-Public Use
  Company Number: JP-ASTELLAS-2013JP013619

PATIENT
  Age: 79 Year
  Sex: Female

DRUGS (7)
  1. VESICARE [Suspect]
     Dosage: UNK
     Route: 048
     Dates: start: 2013
  2. ANTIHYPERTENSIVES [Concomitant]
     Route: 065
  3. ANTIHYPERTENSIVES [Concomitant]
     Route: 065
  4. INFUSION [Concomitant]
     Indication: RENAL FAILURE ACUTE
     Route: 041
  5. INFUSION [Concomitant]
     Indication: PYREXIA
  6. ANTIBIOTICS [Concomitant]
     Indication: RENAL FAILURE ACUTE
     Dosage: UNK
     Route: 065
  7. ANTIBIOTICS [Concomitant]
     Indication: PYREXIA

REACTIONS (3)
  - Renal failure acute [Recovered/Resolved]
  - Pyrexia [Recovered/Resolved]
  - Blood pressure decreased [Not Recovered/Not Resolved]
